FAERS Safety Report 23668114 (Version 4)
Quarter: 2025Q1

REPORT INFORMATION
  Report Type: Spontaneous
  Country: CA (occurrence: CA)
  Receive Date: 20240325
  Receipt Date: 20250321
  Transmission Date: 20250409
  Serious: Yes (Other)
  Sender: JOHNSON AND JOHNSON
  Company Number: CA-Eisai-EC-2024-162063

PATIENT
  Age: 41 Year
  Sex: Female

DRUGS (244)
  1. RABEPRAZOLE [Suspect]
     Active Substance: RABEPRAZOLE
     Indication: Migraine
     Route: 048
     Dates: start: 20120515, end: 20120614
  2. RABEPRAZOLE [Suspect]
     Active Substance: RABEPRAZOLE
     Route: 048
     Dates: start: 20120731, end: 20120922
  3. RABEPRAZOLE [Suspect]
     Active Substance: RABEPRAZOLE
     Route: 048
     Dates: start: 20121017, end: 20121108
  4. RABEPRAZOLE [Suspect]
     Active Substance: RABEPRAZOLE
     Route: 048
     Dates: start: 20121017, end: 20121108
  5. RABEPRAZOLE [Suspect]
     Active Substance: RABEPRAZOLE
     Route: 048
     Dates: start: 20130102, end: 20130129
  6. RABEPRAZOLE [Suspect]
     Active Substance: RABEPRAZOLE
     Route: 048
     Dates: start: 20130306, end: 20130311
  7. RABEPRAZOLE [Suspect]
     Active Substance: RABEPRAZOLE
     Route: 048
     Dates: start: 20130430, end: 20130715
  8. RABEPRAZOLE [Suspect]
     Active Substance: RABEPRAZOLE
     Route: 048
     Dates: start: 20130731, end: 20130827
  9. RABEPRAZOLE [Suspect]
     Active Substance: RABEPRAZOLE
     Route: 048
     Dates: start: 20130925, end: 20131130
  10. RABEPRAZOLE [Suspect]
     Active Substance: RABEPRAZOLE
     Route: 048
     Dates: start: 20131224, end: 20131224
  11. RABEPRAZOLE [Suspect]
     Active Substance: RABEPRAZOLE
     Route: 048
     Dates: start: 20140108, end: 20140310
  12. RABEPRAZOLE [Suspect]
     Active Substance: RABEPRAZOLE
     Route: 048
     Dates: start: 20140205, end: 20140225
  13. RABEPRAZOLE [Suspect]
     Active Substance: RABEPRAZOLE
     Route: 048
     Dates: start: 20170505, end: 20170921
  14. RABEPRAZOLE [Suspect]
     Active Substance: RABEPRAZOLE
     Route: 048
     Dates: start: 20171018, end: 20180303
  15. RABEPRAZOLE [Suspect]
     Active Substance: RABEPRAZOLE
     Route: 048
     Dates: start: 20180316, end: 20180821
  16. RABEPRAZOLE [Suspect]
     Active Substance: RABEPRAZOLE
     Route: 048
     Dates: start: 20180919, end: 20190208
  17. RABEPRAZOLE [Suspect]
     Active Substance: RABEPRAZOLE
     Route: 048
     Dates: start: 20190304, end: 20190725
  18. RABEPRAZOLE [Suspect]
     Active Substance: RABEPRAZOLE
     Route: 048
     Dates: start: 20190816, end: 20200109
  19. RABEPRAZOLE [Suspect]
     Active Substance: RABEPRAZOLE
     Route: 048
     Dates: start: 20200213
  20. TRAMADOL HYDROCHLORIDE [Suspect]
     Active Substance: TRAMADOL HYDROCHLORIDE
     Indication: Product used for unknown indication
     Route: 065
  21. TRAMADOL HYDROCHLORIDE [Suspect]
     Active Substance: TRAMADOL HYDROCHLORIDE
     Indication: Product used for unknown indication
     Route: 048
  22. ACETAMINOPHEN [Suspect]
     Active Substance: ACETAMINOPHEN
     Indication: Product used for unknown indication
     Route: 048
  23. TOPAMAX [Suspect]
     Active Substance: TOPIRAMATE
     Indication: Migraine
     Route: 065
  24. ESOMEPRAZOLE MAGNESIUM [Suspect]
     Active Substance: ESOMEPRAZOLE MAGNESIUM
     Indication: Migraine
     Route: 048
  25. ZOLMITRIPTAN [Suspect]
     Active Substance: ZOLMITRIPTAN
     Indication: Migraine
     Route: 048
  26. CIPROFLOXACIN [Suspect]
     Active Substance: CIPROFLOXACIN
     Indication: Migraine
     Route: 048
  27. CIPROFLOXACIN [Suspect]
     Active Substance: CIPROFLOXACIN
     Route: 048
     Dates: start: 20170930, end: 20170930
  28. CIPROFLOXACIN [Suspect]
     Active Substance: CIPROFLOXACIN
     Route: 048
  29. CIPROFLOXACIN [Suspect]
     Active Substance: CIPROFLOXACIN
     Route: 048
  30. CIPROFLOXACIN [Suspect]
     Active Substance: CIPROFLOXACIN
     Route: 048
  31. CIPROFLOXACIN [Suspect]
     Active Substance: CIPROFLOXACIN
     Route: 048
  32. LISINOPRIL [Suspect]
     Active Substance: LISINOPRIL
     Indication: Migraine
     Route: 048
  33. LISINOPRIL [Suspect]
     Active Substance: LISINOPRIL
     Route: 048
  34. PROPRANOLOL [Suspect]
     Active Substance: PROPRANOLOL HYDROCHLORIDE
     Indication: Migraine
     Route: 065
  35. PROPRANOLOL [Suspect]
     Active Substance: PROPRANOLOL HYDROCHLORIDE
     Route: 065
  36. PROPRANOLOL [Suspect]
     Active Substance: PROPRANOLOL HYDROCHLORIDE
     Route: 065
  37. AMOXICILLIN [Suspect]
     Active Substance: AMOXICILLIN
     Indication: Product used for unknown indication
     Route: 065
  38. AMOXICILLIN [Suspect]
     Active Substance: AMOXICILLIN
     Route: 065
  39. AMOXICILLIN [Suspect]
     Active Substance: AMOXICILLIN
     Route: 065
  40. AMOXICILLIN [Suspect]
     Active Substance: AMOXICILLIN
  41. AZITHROMYCIN [Suspect]
     Active Substance: AZITHROMYCIN
     Indication: Migraine
     Route: 065
     Dates: start: 20190208, end: 20190208
  42. AZITHROMYCIN [Suspect]
     Active Substance: AZITHROMYCIN
     Route: 065
  43. AZITHROMYCIN [Suspect]
     Active Substance: AZITHROMYCIN
     Route: 065
     Dates: start: 20120523, end: 20120523
  44. BOTULINUM TOXIN TYPE A [Suspect]
     Active Substance: BOTULINUM TOXIN TYPE A
     Indication: Product used for unknown indication
     Route: 065
     Dates: start: 20140612, end: 20140813
  45. BOTULINUM TOXIN TYPE A [Suspect]
     Active Substance: BOTULINUM TOXIN TYPE A
     Route: 065
     Dates: start: 20140813, end: 20141010
  46. BOTULINUM TOXIN TYPE A [Suspect]
     Active Substance: BOTULINUM TOXIN TYPE A
     Route: 065
     Dates: start: 20141103, end: 20150102
  47. BOTULINUM TOXIN TYPE A [Suspect]
     Active Substance: BOTULINUM TOXIN TYPE A
     Route: 065
     Dates: start: 20150121, end: 20150323
  48. BOTULINUM TOXIN TYPE A [Suspect]
     Active Substance: BOTULINUM TOXIN TYPE A
     Route: 065
     Dates: start: 20150506, end: 20150703
  49. BOTULINUM TOXIN TYPE A [Suspect]
     Active Substance: BOTULINUM TOXIN TYPE A
     Route: 065
     Dates: start: 20151212, end: 20160609
  50. BOTULINUM TOXIN TYPE A [Suspect]
     Active Substance: BOTULINUM TOXIN TYPE A
     Route: 065
     Dates: start: 20160609, end: 20160609
  51. BOTULINUM TOXIN TYPE A [Suspect]
     Active Substance: BOTULINUM TOXIN TYPE A
     Route: 065
     Dates: start: 20170505, end: 20170505
  52. BOTULINUM TOXIN TYPE A [Suspect]
     Active Substance: BOTULINUM TOXIN TYPE A
     Route: 065
     Dates: start: 20190304, end: 20190304
  53. BOTULINUM TOXIN TYPE A [Suspect]
     Active Substance: BOTULINUM TOXIN TYPE A
     Route: 065
     Dates: start: 20190816, end: 20190816
  54. BOTULINUM TOXIN TYPE A [Suspect]
     Active Substance: BOTULINUM TOXIN TYPE A
     Route: 065
     Dates: start: 20180316, end: 20180316
  55. CLARITHROMYCIN [Suspect]
     Active Substance: CLARITHROMYCIN
     Indication: Migraine
     Route: 065
     Dates: end: 20130130
  56. CLARITHROMYCIN [Suspect]
     Active Substance: CLARITHROMYCIN
     Route: 065
     Dates: end: 20130130
  57. CLARITHROMYCIN [Suspect]
     Active Substance: CLARITHROMYCIN
     Route: 065
     Dates: end: 20130130
  58. CLARITHROMYCIN [Suspect]
     Active Substance: CLARITHROMYCIN
     Route: 065
     Dates: end: 20130130
  59. CLARITHROMYCIN [Suspect]
     Active Substance: CLARITHROMYCIN
     Route: 065
     Dates: start: 20130130, end: 20130130
  60. CODEINE [Suspect]
     Active Substance: CODEINE
     Indication: Migraine
     Route: 048
     Dates: start: 20130130, end: 20130130
  61. CODEINE [Suspect]
     Active Substance: CODEINE
     Route: 048
  62. INDOMETHACIN SODIUM [Suspect]
     Active Substance: INDOMETHACIN SODIUM
     Indication: Migraine
     Route: 054
     Dates: start: 20130523, end: 20130707
  63. INDOMETHACIN SODIUM [Suspect]
     Active Substance: INDOMETHACIN SODIUM
     Route: 054
     Dates: start: 20130102, end: 20130102
  64. INDOMETHACIN SODIUM [Suspect]
     Active Substance: INDOMETHACIN SODIUM
     Route: 054
     Dates: start: 20130306, end: 20130306
  65. INDOMETHACIN SODIUM [Suspect]
     Active Substance: INDOMETHACIN SODIUM
     Route: 054
     Dates: start: 20130430, end: 20130620
  66. INDOMETHACIN SODIUM [Suspect]
     Active Substance: INDOMETHACIN SODIUM
     Route: 054
     Dates: start: 20130731, end: 20130731
  67. INDOMETHACIN SODIUM [Suspect]
     Active Substance: INDOMETHACIN SODIUM
     Route: 054
     Dates: start: 20130925, end: 20130925
  68. INDOMETHACIN SODIUM [Suspect]
     Active Substance: INDOMETHACIN SODIUM
     Route: 054
     Dates: start: 20131104, end: 20131104
  69. INDOMETHACIN SODIUM [Suspect]
     Active Substance: INDOMETHACIN SODIUM
     Route: 054
     Dates: start: 20140108, end: 20140108
  70. INDOMETHACIN SODIUM [Suspect]
     Active Substance: INDOMETHACIN SODIUM
     Route: 054
     Dates: start: 20140325, end: 20140325
  71. INDOMETHACIN SODIUM [Suspect]
     Active Substance: INDOMETHACIN SODIUM
     Route: 054
     Dates: start: 20140612, end: 20140813
  72. INDOMETHACIN SODIUM [Suspect]
     Active Substance: INDOMETHACIN SODIUM
     Route: 054
     Dates: start: 20140813, end: 20140813
  73. INDOMETHACIN SODIUM [Suspect]
     Active Substance: INDOMETHACIN SODIUM
     Route: 054
     Dates: start: 20141103, end: 20141103
  74. INDOMETHACIN SODIUM [Suspect]
     Active Substance: INDOMETHACIN SODIUM
     Route: 054
     Dates: start: 20121017, end: 20121130
  75. INDOMETHACIN SODIUM [Suspect]
     Active Substance: INDOMETHACIN SODIUM
     Route: 054
     Dates: start: 20140325, end: 20140325
  76. INDOMETHACIN SODIUM [Suspect]
     Active Substance: INDOMETHACIN SODIUM
     Route: 054
     Dates: start: 20140612, end: 20140612
  77. INDOMETHACIN SODIUM [Suspect]
     Active Substance: INDOMETHACIN SODIUM
     Route: 054
     Dates: start: 20140813, end: 20140813
  78. INDOMETHACIN SODIUM [Suspect]
     Active Substance: INDOMETHACIN SODIUM
     Route: 054
     Dates: start: 20141103, end: 20141103
  79. INDOMETHACIN SODIUM [Suspect]
     Active Substance: INDOMETHACIN SODIUM
     Route: 054
     Dates: start: 20150121, end: 20150121
  80. INDOMETHACIN SODIUM [Suspect]
     Active Substance: INDOMETHACIN SODIUM
     Route: 054
     Dates: start: 20151216, end: 20160609
  81. INDOMETHACIN SODIUM [Suspect]
     Active Substance: INDOMETHACIN SODIUM
     Route: 054
     Dates: start: 20161116, end: 20170116
  82. INDOMETHACIN SODIUM [Suspect]
     Active Substance: INDOMETHACIN SODIUM
     Route: 054
     Dates: start: 20170505, end: 20170630
  83. INDOMETHACIN SODIUM [Suspect]
     Active Substance: INDOMETHACIN SODIUM
     Route: 054
     Dates: start: 20180919, end: 20190208
  84. INDOMETHACIN SODIUM [Suspect]
     Active Substance: INDOMETHACIN SODIUM
     Route: 054
     Dates: start: 20190304, end: 20190404
  85. INDOMETHACIN SODIUM [Suspect]
     Active Substance: INDOMETHACIN SODIUM
     Route: 054
     Dates: start: 20200213
  86. INDOMETHACIN SODIUM [Suspect]
     Active Substance: INDOMETHACIN SODIUM
     Route: 054
  87. LANSOPRAZOLE [Suspect]
     Active Substance: LANSOPRAZOLE
     Indication: Migraine
     Route: 048
  88. METOCLOPRAMIDE HYDROCHLORIDE [Suspect]
     Active Substance: METOCLOPRAMIDE HYDROCHLORIDE
     Indication: Migraine
     Route: 065
  89. METOCLOPRAMIDE HYDROCHLORIDE [Suspect]
     Active Substance: METOCLOPRAMIDE HYDROCHLORIDE
     Route: 065
  90. MOMETASONE FUROATE [Suspect]
     Active Substance: MOMETASONE FUROATE
     Indication: Migraine
     Route: 065
     Dates: start: 20190816, end: 20200109
  91. MOMETASONE FUROATE [Suspect]
     Active Substance: MOMETASONE FUROATE
     Route: 065
     Dates: start: 20190725
  92. RIZATRIPTAN BENZOATE [Suspect]
     Active Substance: RIZATRIPTAN BENZOATE
     Indication: Migraine
     Route: 065
  93. RIZATRIPTAN BENZOATE [Suspect]
     Active Substance: RIZATRIPTAN BENZOATE
     Route: 065
  94. RIZATRIPTAN BENZOATE [Suspect]
     Active Substance: RIZATRIPTAN BENZOATE
     Route: 065
  95. ACETAMINOPHEN\BUTYLSCOPOLAMINE BROMIDE [Suspect]
     Active Substance: ACETAMINOPHEN\BUTYLSCOPOLAMINE BROMIDE
     Indication: Migraine
     Route: 065
  96. ALBUTEROL [Suspect]
     Active Substance: ALBUTEROL
     Indication: Product used for unknown indication
     Route: 065
  97. SERTRALINE HYDROCHLORIDE [Suspect]
     Active Substance: SERTRALINE HYDROCHLORIDE
     Indication: Migraine
     Route: 065
  98. SUMATRIPTAN [Suspect]
     Active Substance: SUMATRIPTAN
     Indication: Migraine
     Route: 065
  99. SUMATRIPTAN SUCCINATE [Suspect]
     Active Substance: SUMATRIPTAN SUCCINATE
     Indication: Migraine
     Route: 065
  100. DULOXETINE [Suspect]
     Active Substance: DULOXETINE
     Indication: Migraine
  101. TRIMETHOPRIM [Suspect]
     Active Substance: TRIMETHOPRIM
     Indication: Product used for unknown indication
     Route: 048
  102. VENLAFAXINE HYDROCHLORIDE [Suspect]
     Active Substance: VENLAFAXINE HYDROCHLORIDE
     Indication: Product used for unknown indication
     Route: 065
  103. ZOPICLONE [Suspect]
     Active Substance: ZOPICLONE
     Indication: Migraine
     Route: 065
     Dates: start: 20121017, end: 20121130
  104. ZOPICLONE [Suspect]
     Active Substance: ZOPICLONE
     Route: 065
     Dates: start: 20130102, end: 20130225
  105. ZOPICLONE [Suspect]
     Active Substance: ZOPICLONE
     Route: 065
     Dates: start: 20130306, end: 20130411
  106. ZOPICLONE [Suspect]
     Active Substance: ZOPICLONE
     Route: 065
     Dates: start: 20130731, end: 20130920
  107. ZOPICLONE [Suspect]
     Active Substance: ZOPICLONE
     Route: 065
     Dates: start: 20130925, end: 20131130
  108. ZOPICLONE [Suspect]
     Active Substance: ZOPICLONE
     Route: 065
     Dates: start: 20131224, end: 20131224
  109. ZOPICLONE [Suspect]
     Active Substance: ZOPICLONE
     Route: 065
     Dates: start: 20140108, end: 20140310
  110. ZOPICLONE [Suspect]
     Active Substance: ZOPICLONE
     Route: 065
     Dates: start: 20140325, end: 20140521
  111. ZOPICLONE [Suspect]
     Active Substance: ZOPICLONE
     Route: 065
     Dates: start: 20140612, end: 20140728
  112. ZOPICLONE [Suspect]
     Active Substance: ZOPICLONE
     Route: 065
     Dates: start: 20140813, end: 20141010
  113. ZOPICLONE [Suspect]
     Active Substance: ZOPICLONE
     Route: 065
     Dates: start: 20141103, end: 20150102
  114. ZOPICLONE [Suspect]
     Active Substance: ZOPICLONE
     Route: 065
     Dates: start: 20150121, end: 20150424
  115. ZOPICLONE [Suspect]
     Active Substance: ZOPICLONE
     Route: 065
     Dates: start: 20150506, end: 20150703
  116. ZOPICLONE [Suspect]
     Active Substance: ZOPICLONE
     Route: 065
     Dates: start: 20151013, end: 20151207
  117. ZOPICLONE [Suspect]
     Active Substance: ZOPICLONE
     Route: 065
     Dates: start: 20151216, end: 20160226
  118. ZOPICLONE [Suspect]
     Active Substance: ZOPICLONE
     Route: 065
     Dates: start: 20160323, end: 20160323
  119. ZOPICLONE [Suspect]
     Active Substance: ZOPICLONE
     Route: 065
     Dates: start: 20160418, end: 20160418
  120. ZOPICLONE [Suspect]
     Active Substance: ZOPICLONE
     Route: 065
     Dates: start: 20160609, end: 20161027
  121. ZOPICLONE [Suspect]
     Active Substance: ZOPICLONE
     Route: 065
     Dates: start: 20161116, end: 20170116
  122. ZOPICLONE [Suspect]
     Active Substance: ZOPICLONE
     Route: 065
     Dates: start: 20170118, end: 20170410
  123. ZOPICLONE [Suspect]
     Active Substance: ZOPICLONE
     Route: 065
  124. ZOPICLONE [Suspect]
     Active Substance: ZOPICLONE
     Route: 065
  125. ZOPICLONE [Suspect]
     Active Substance: ZOPICLONE
     Route: 065
     Dates: start: 20120512, end: 20120707
  126. AMOXICILLIN TRIHYDRATE [Suspect]
     Active Substance: AMOXICILLIN
     Indication: Product used for unknown indication
     Route: 065
  127. PREDNISONE [Suspect]
     Active Substance: PREDNISONE
     Indication: Product used for unknown indication
     Route: 048
  128. DEXAMETHASONE [Suspect]
     Active Substance: DEXAMETHASONE
     Indication: Migraine
     Route: 048
  129. DEXAMETHASONE [Suspect]
     Active Substance: DEXAMETHASONE
     Route: 048
  130. DEXAMETHASONE [Suspect]
     Active Substance: DEXAMETHASONE
     Route: 048
  131. DEXAMETHASONE [Suspect]
     Active Substance: DEXAMETHASONE
     Route: 048
  132. DEXAMETHASONE [Suspect]
     Active Substance: DEXAMETHASONE
     Route: 048
  133. DEXAMETHASONE [Suspect]
     Active Substance: DEXAMETHASONE
     Route: 048
     Dates: start: 20180618, end: 20180618
  134. DULOXETINE [Suspect]
     Active Substance: DULOXETINE
     Indication: Migraine
     Route: 048
  135. DULOXETINE [Suspect]
     Active Substance: DULOXETINE
     Route: 048
  136. FLUCONAZOLE [Suspect]
     Active Substance: FLUCONAZOLE
     Indication: Migraine
     Route: 065
  137. FLUCONAZOLE [Suspect]
     Active Substance: FLUCONAZOLE
     Route: 065
  138. FLUCONAZOLE [Suspect]
     Active Substance: FLUCONAZOLE
     Route: 065
  139. FLUCONAZOLE [Suspect]
     Active Substance: FLUCONAZOLE
     Dates: start: 20180424, end: 20180424
  140. HYDROMORPHONE HYDROCHLORIDE [Suspect]
     Active Substance: HYDROMORPHONE HYDROCHLORIDE
     Indication: Migraine
     Route: 065
     Dates: start: 20140325, end: 20140325
  141. HYDROMORPHONE HYDROCHLORIDE [Suspect]
     Active Substance: HYDROMORPHONE HYDROCHLORIDE
     Route: 065
     Dates: start: 20140402, end: 20140402
  142. HYDROMORPHONE HYDROCHLORIDE [Suspect]
     Active Substance: HYDROMORPHONE HYDROCHLORIDE
     Route: 065
     Dates: start: 20140612, end: 20140612
  143. HYDROMORPHONE HYDROCHLORIDE [Suspect]
     Active Substance: HYDROMORPHONE HYDROCHLORIDE
     Route: 065
     Dates: start: 20140813, end: 20140813
  144. HYDROMORPHONE HYDROCHLORIDE [Suspect]
     Active Substance: HYDROMORPHONE HYDROCHLORIDE
     Route: 065
     Dates: start: 20141103, end: 20141103
  145. HYDROMORPHONE HYDROCHLORIDE [Suspect]
     Active Substance: HYDROMORPHONE HYDROCHLORIDE
     Route: 065
     Dates: start: 20141128, end: 20141128
  146. HYDROMORPHONE HYDROCHLORIDE [Suspect]
     Active Substance: HYDROMORPHONE HYDROCHLORIDE
     Route: 065
     Dates: start: 20150121, end: 20150121
  147. HYDROMORPHONE HYDROCHLORIDE [Suspect]
     Active Substance: HYDROMORPHONE HYDROCHLORIDE
     Route: 065
     Dates: start: 20150227, end: 20150227
  148. HYDROMORPHONE HYDROCHLORIDE [Suspect]
     Active Substance: HYDROMORPHONE HYDROCHLORIDE
     Route: 065
     Dates: start: 20150413, end: 20150413
  149. HYDROMORPHONE HYDROCHLORIDE [Suspect]
     Active Substance: HYDROMORPHONE HYDROCHLORIDE
     Route: 065
     Dates: start: 20150506, end: 20150510
  150. HYDROMORPHONE HYDROCHLORIDE [Suspect]
     Active Substance: HYDROMORPHONE HYDROCHLORIDE
     Route: 065
     Dates: start: 20150709, end: 20150902
  151. HYDROMORPHONE HYDROCHLORIDE [Suspect]
     Active Substance: HYDROMORPHONE HYDROCHLORIDE
     Route: 065
     Dates: start: 20151013, end: 20151207
  152. HYDROMORPHONE HYDROCHLORIDE [Suspect]
     Active Substance: HYDROMORPHONE HYDROCHLORIDE
     Route: 065
     Dates: start: 20151216, end: 20160226
  153. HYDROMORPHONE HYDROCHLORIDE [Suspect]
     Active Substance: HYDROMORPHONE HYDROCHLORIDE
     Route: 065
     Dates: start: 20140203, end: 20140203
  154. HYDROMORPHONE HYDROCHLORIDE [Suspect]
     Active Substance: HYDROMORPHONE HYDROCHLORIDE
     Route: 065
     Dates: start: 20160322, end: 20160516
  155. HYDROMORPHONE HYDROCHLORIDE [Suspect]
     Active Substance: HYDROMORPHONE HYDROCHLORIDE
     Route: 065
     Dates: start: 20160418, end: 20160418
  156. HYDROMORPHONE HYDROCHLORIDE [Suspect]
     Active Substance: HYDROMORPHONE HYDROCHLORIDE
     Route: 065
     Dates: start: 20160609, end: 20161027
  157. HYDROMORPHONE HYDROCHLORIDE [Suspect]
     Active Substance: HYDROMORPHONE HYDROCHLORIDE
     Route: 065
     Dates: start: 20161116, end: 20170116
  158. HYDROMORPHONE HYDROCHLORIDE [Suspect]
     Active Substance: HYDROMORPHONE HYDROCHLORIDE
     Route: 065
     Dates: start: 20170118, end: 20170410
  159. HYDROMORPHONE HYDROCHLORIDE [Suspect]
     Active Substance: HYDROMORPHONE HYDROCHLORIDE
     Route: 065
     Dates: start: 20170505, end: 20170921
  160. HYDROMORPHONE HYDROCHLORIDE [Suspect]
     Active Substance: HYDROMORPHONE HYDROCHLORIDE
     Route: 065
     Dates: start: 20171018, end: 20180303
  161. HYDROMORPHONE HYDROCHLORIDE [Suspect]
     Active Substance: HYDROMORPHONE HYDROCHLORIDE
     Route: 065
     Dates: start: 20180316, end: 20180821
  162. HYDROMORPHONE HYDROCHLORIDE [Suspect]
     Active Substance: HYDROMORPHONE HYDROCHLORIDE
     Route: 065
     Dates: start: 20200213
  163. HYDROMORPHONE HYDROCHLORIDE [Suspect]
     Active Substance: HYDROMORPHONE HYDROCHLORIDE
     Route: 065
  164. INDOMETHACIN [Suspect]
     Active Substance: INDOMETHACIN
     Indication: Migraine
     Route: 054
  165. INDOMETHACIN [Suspect]
     Active Substance: INDOMETHACIN
     Route: 054
  166. INDOMETHACIN [Suspect]
     Active Substance: INDOMETHACIN
     Route: 054
  167. INDOMETHACIN [Suspect]
     Active Substance: INDOMETHACIN
     Route: 054
  168. INDOMETHACIN [Suspect]
     Active Substance: INDOMETHACIN
     Route: 054
  169. INDOMETHACIN [Suspect]
     Active Substance: INDOMETHACIN
     Route: 054
  170. INDOMETHACIN [Suspect]
     Active Substance: INDOMETHACIN
     Route: 054
  171. INDOMETHACIN [Suspect]
     Active Substance: INDOMETHACIN
     Route: 054
  172. INDOMETHACIN [Suspect]
     Active Substance: INDOMETHACIN
     Route: 054
  173. INDOMETHACIN [Suspect]
     Active Substance: INDOMETHACIN
     Route: 054
  174. INDOMETHACIN [Suspect]
     Active Substance: INDOMETHACIN
     Route: 054
  175. INDOMETHACIN [Suspect]
     Active Substance: INDOMETHACIN
     Route: 054
  176. INDOMETHACIN [Suspect]
     Active Substance: INDOMETHACIN
     Route: 054
  177. INDOMETHACIN [Suspect]
     Active Substance: INDOMETHACIN
     Route: 054
  178. INDOMETHACIN [Suspect]
     Active Substance: INDOMETHACIN
     Route: 054
  179. INDOMETHACIN [Suspect]
     Active Substance: INDOMETHACIN
     Route: 054
  180. INDOMETHACIN [Suspect]
     Active Substance: INDOMETHACIN
     Route: 054
  181. INDOMETHACIN [Suspect]
     Active Substance: INDOMETHACIN
     Route: 054
  182. INDOMETHACIN [Suspect]
     Active Substance: INDOMETHACIN
     Route: 054
  183. INDOMETHACIN [Suspect]
     Active Substance: INDOMETHACIN
     Route: 054
  184. INDOMETHACIN [Suspect]
     Active Substance: INDOMETHACIN
     Route: 054
  185. ESCITALOPRAM [Suspect]
     Active Substance: ESCITALOPRAM OXALATE
     Indication: Migraine
     Route: 048
  186. ESCITALOPRAM [Suspect]
     Active Substance: ESCITALOPRAM OXALATE
     Route: 048
  187. METOCLOPRAMIDE [Suspect]
     Active Substance: METOCLOPRAMIDE
     Indication: Migraine
     Route: 065
  188. CLOTRIMAZOLE [Suspect]
     Active Substance: CLOTRIMAZOLE
     Indication: Migraine
     Route: 065
  189. ACETAMINOPHEN\DIPHENHYDRAMINE HYDROCHLORIDE [Suspect]
     Active Substance: ACETAMINOPHEN\DIPHENHYDRAMINE HYDROCHLORIDE
     Indication: Product used for unknown indication
     Route: 065
  190. CYMBALTA [Concomitant]
     Active Substance: DULOXETINE HYDROCHLORIDE
     Indication: Product used for unknown indication
  191. CYMBALTA [Concomitant]
     Active Substance: DULOXETINE HYDROCHLORIDE
  192. CYMBALTA [Concomitant]
     Active Substance: DULOXETINE HYDROCHLORIDE
  193. CYMBALTA [Concomitant]
     Active Substance: DULOXETINE HYDROCHLORIDE
  194. CYMBALTA [Concomitant]
     Active Substance: DULOXETINE HYDROCHLORIDE
  195. CYMBALTA [Concomitant]
     Active Substance: DULOXETINE HYDROCHLORIDE
  196. CYMBALTA [Concomitant]
     Active Substance: DULOXETINE HYDROCHLORIDE
  197. CYMBALTA [Concomitant]
     Active Substance: DULOXETINE HYDROCHLORIDE
  198. CYMBALTA [Concomitant]
     Active Substance: DULOXETINE HYDROCHLORIDE
  199. CYMBALTA [Concomitant]
     Active Substance: DULOXETINE HYDROCHLORIDE
  200. CYMBALTA [Concomitant]
     Active Substance: DULOXETINE HYDROCHLORIDE
  201. CYMBALTA [Concomitant]
     Active Substance: DULOXETINE HYDROCHLORIDE
  202. CYMBALTA [Concomitant]
     Active Substance: DULOXETINE HYDROCHLORIDE
  203. CYMBALTA [Concomitant]
     Active Substance: DULOXETINE HYDROCHLORIDE
  204. CYMBALTA [Concomitant]
     Active Substance: DULOXETINE HYDROCHLORIDE
  205. CYMBALTA [Concomitant]
     Active Substance: DULOXETINE HYDROCHLORIDE
  206. CYMBALTA [Concomitant]
     Active Substance: DULOXETINE HYDROCHLORIDE
  207. LISINOPRIL [Concomitant]
     Active Substance: LISINOPRIL
     Indication: Product used for unknown indication
     Route: 048
  208. LISINOPRIL [Concomitant]
     Active Substance: LISINOPRIL
     Route: 048
  209. CEFUROXIME AXETIL [Concomitant]
     Active Substance: CEFUROXIME AXETIL
     Indication: Product used for unknown indication
  210. CEFUROXIME AXETIL [Concomitant]
     Active Substance: CEFUROXIME AXETIL
  211. CEFUROXIME AXETIL [Concomitant]
     Active Substance: CEFUROXIME AXETIL
  212. ACETAMINOPHEN\CODEINE PHOSPHATE [Concomitant]
     Active Substance: ACETAMINOPHEN\CODEINE PHOSPHATE
     Indication: Product used for unknown indication
     Dosage: UNKNOWN DOSE
  213. ACETAMINOPHEN\CODEINE PHOSPHATE [Concomitant]
     Active Substance: ACETAMINOPHEN\CODEINE PHOSPHATE
     Dosage: UNKNOWN DOSE
  214. CEPHALEXIN [Concomitant]
     Active Substance: CEPHALEXIN
     Indication: Product used for unknown indication
  215. CEPHALEXIN [Concomitant]
     Active Substance: CEPHALEXIN
  216. CEPHALEXIN [Concomitant]
     Active Substance: CEPHALEXIN
  217. DANAZOL [Concomitant]
     Active Substance: DANAZOL
     Indication: Product used for unknown indication
     Route: 048
  218. FERROUS FUMARATE [Concomitant]
     Active Substance: FERROUS FUMARATE
     Indication: Product used for unknown indication
  219. FLUOXETINE [Concomitant]
     Active Substance: FLUOXETINE HYDROCHLORIDE
     Indication: Product used for unknown indication
  220. FLUTICASONE [Concomitant]
     Active Substance: FLUTICASONE
     Indication: Product used for unknown indication
  221. FLUTICASONE [Concomitant]
     Active Substance: FLUTICASONE
  222. FROVA [Concomitant]
     Active Substance: FROVATRIPTAN SUCCINATE
     Indication: Product used for unknown indication
  223. MACROBID [Concomitant]
     Active Substance: NITROFURANTOIN\NITROFURANTOIN MONOHYDRATE
     Indication: Product used for unknown indication
  224. MACROBID [Concomitant]
     Active Substance: NITROFURANTOIN\NITROFURANTOIN MONOHYDRATE
  225. POLYETHYLENE GLYCOLS [Concomitant]
     Active Substance: POLYETHYLENE GLYCOLS
     Indication: Product used for unknown indication
  226. METOCLOPRAMIDE [Concomitant]
     Active Substance: METOCLOPRAMIDE
     Indication: Product used for unknown indication
  227. METRONIDAZOLE [Concomitant]
     Active Substance: METRONIDAZOLE
     Indication: Product used for unknown indication
  228. MORPHINE SULFATE [Concomitant]
     Active Substance: MORPHINE SULFATE
     Indication: Product used for unknown indication
  229. MORPHINE SULFATE [Concomitant]
     Active Substance: MORPHINE SULFATE
  230. MORPHINE SULFATE [Concomitant]
     Active Substance: MORPHINE SULFATE
  231. MORPHINE SULFATE [Concomitant]
     Active Substance: MORPHINE SULFATE
  232. MORPHINE SULFATE [Concomitant]
     Active Substance: MORPHINE SULFATE
  233. MORPHINE SULFATE [Concomitant]
     Active Substance: MORPHINE SULFATE
  234. MORPHINE SULFATE [Concomitant]
     Active Substance: MORPHINE SULFATE
  235. MORPHINE SULFATE [Concomitant]
     Active Substance: MORPHINE SULFATE
  236. NAPROXEN [Concomitant]
     Active Substance: NAPROXEN
     Indication: Product used for unknown indication
  237. NASONEX [Concomitant]
     Active Substance: MOMETASONE FUROATE
     Indication: Migraine
  238. OSELTAMIVIR [Concomitant]
     Active Substance: OSELTAMIVIR
     Indication: Product used for unknown indication
  239. PANTOPRAZOLE SODIUM [Concomitant]
     Active Substance: PANTOPRAZOLE SODIUM
     Indication: Product used for unknown indication
  240. SULFATRIM [Concomitant]
     Active Substance: SULFAMETHOXAZOLE\TRIMETHOPRIM
     Indication: Product used for unknown indication
  241. SULFATRIM [Concomitant]
     Active Substance: SULFAMETHOXAZOLE\TRIMETHOPRIM
  242. ALLOPURINOL [Concomitant]
     Active Substance: ALLOPURINOL
     Indication: Product used for unknown indication
     Route: 048
  243. CEFUROXIME SODIUM [Concomitant]
     Active Substance: CEFUROXIME SODIUM
     Indication: Product used for unknown indication
  244. ALLOPURINOL [Concomitant]
     Active Substance: ALLOPURINOL

REACTIONS (8)
  - Dysphonia [Unknown]
  - Swollen tongue [Unknown]
  - Hypersensitivity [Unknown]
  - Swelling face [Unknown]
  - Headache [Unknown]
  - Angioedema [Unknown]
  - Drug ineffective [Unknown]
  - Off label use [Unknown]
